FAERS Safety Report 6785513-X (Version None)
Quarter: 2010Q2

REPORT INFORMATION
  Report Type: 
  Country: None (occurrence: None)
  Receive Date: 20100621
  Receipt Date: 20100621
  Transmission Date: 20101027
  Serious: Yes (Life-Threatening, Hospitalization)
  Sender: FDA-Public Use
  Company Number: None

PATIENT
  Sex: Male
  Weight: 117.4816 kg

DRUGS (1)
  1. BENDAMUSTINE [Suspect]
     Indication: SMALL CELL LUNG CANCER STAGE UNSPECIFIED
     Dosage: 280 MG D1 AND D2 OF EVERY 21 DAY CYCLE
     Route: 042
     Dates: start: 20100426

REACTIONS (2)
  - HYPERCOAGULATION [None]
  - PULMONARY EMBOLISM [None]
